FAERS Safety Report 24260432 (Version 1)
Quarter: 2024Q3

REPORT INFORMATION
  Report Type: Spontaneous
  Country: US (occurrence: US)
  Receive Date: 20240828
  Receipt Date: 20240828
  Transmission Date: 20241017
  Serious: No
  Sender: BRISTOL MYERS SQUIBB
  Company Number: US-BRISTOL-MYERS SQUIBB COMPANY-2024-136614

PATIENT
  Age: 41 Year
  Sex: Male

DRUGS (3)
  1. ZEPOSIA [Suspect]
     Active Substance: OZANIMOD HYDROCHLORIDE
     Indication: Rectal haemorrhage
     Dosage: 1 TIME A DAY FOR 4 DAYS
     Route: 048
     Dates: start: 202404
  2. ZEPOSIA [Suspect]
     Active Substance: OZANIMOD HYDROCHLORIDE
     Dosage: 1 TIME A DAY FOR 3 DAYS
     Route: 048
  3. ZEPOSIA [Suspect]
     Active Substance: OZANIMOD HYDROCHLORIDE
     Dosage: 1 TIME A DAY THEREAFTER
     Route: 048

REACTIONS (2)
  - Adverse drug reaction [Unknown]
  - Off label use [Unknown]
